FAERS Safety Report 4983690-4 (Version None)
Quarter: 2006Q2

REPORT INFORMATION
  Report Type: 
  Country: None (occurrence: None)
  Receive Date: 20060425
  Receipt Date: 20060425
  Transmission Date: 20061013
  Serious: Yes (Other)
  Sender: FDA-Public Use
  Company Number: None

PATIENT
  Age: 74 Year
  Sex: Male
  Weight: 29.9374 kg

DRUGS (4)
  1. NPH INSULIN 100 U [Suspect]
     Indication: DIABETES MELLITUS
     Dosage: 25 UNITS Q AM SQ
     Route: 058
     Dates: start: 20050128, end: 20050202
  2. NPH INSULIN 100 U [Suspect]
     Indication: DIABETES MELLITUS
     Dosage: 10 UNITS Q PO SQ
     Route: 058
     Dates: start: 20050128, end: 20050202
  3. TYLOX [Concomitant]
  4. MORPHINE [Concomitant]

REACTIONS (10)
  - AGONAL DEATH STRUGGLE [None]
  - BLOOD GLUCOSE DECREASED [None]
  - CARDIO-RESPIRATORY ARREST [None]
  - COLD SWEAT [None]
  - DEPRESSED LEVEL OF CONSCIOUSNESS [None]
  - GANGRENE [None]
  - GRAND MAL CONVULSION [None]
  - LEG AMPUTATION [None]
  - POSTICTAL STATE [None]
  - SOMNOLENCE [None]
